FAERS Safety Report 19844291 (Version 1)
Quarter: 2021Q3

REPORT INFORMATION
  Report Type: Report from Study
  Country: IT (occurrence: IT)
  Receive Date: 20210916
  Receipt Date: 20210916
  Transmission Date: 20211014
  Serious: Yes (Other)
  Sender: FDA-Public Use
  Company Number: IT-MYLANLABS-2021M1062159

PATIENT
  Age: 74 Year
  Sex: Female

DRUGS (4)
  1. LOSARTAN. [Concomitant]
     Active Substance: LOSARTAN
     Dosage: UNK
  2. AMOXICILLINA E ACIDO CLAVULANICO ALTER [AMOXICILLIN TRIHYDRATE/CLAVULANATE POTASSIUM] [Suspect]
     Active Substance: AMOXICILLIN\CLAVULANATE POTASSIUM
     Indication: DIVERTICULITIS
     Dosage: UNK
     Dates: start: 20210309
  3. METRONIDAZOLE. [Suspect]
     Active Substance: METRONIDAZOLE
     Indication: DIVERTICULITIS
     Dosage: UNK
     Dates: start: 20210309
  4. IOMERON [Suspect]
     Active Substance: IOMEPROL
     Dosage: UNK
     Dates: start: 20210309

REACTIONS (3)
  - Pruritus [Recovering/Resolving]
  - Eye irritation [Recovering/Resolving]
  - Orbital oedema [Recovering/Resolving]

NARRATIVE: CASE EVENT DATE: 20210309
